FAERS Safety Report 5228874-5 (Version None)
Quarter: 2007Q1

REPORT INFORMATION
  Report Type: 
  Country: None (occurrence: None)
  Receive Date: 20070205
  Receipt Date: 20070125
  Transmission Date: 20070707
  Serious: Yes (Other)
  Sender: FDA-Public Use
  Company Number: US-ROCHE-480020

PATIENT
  Age: 59 Year
  Sex: Male
  Weight: 81.6 kg

DRUGS (2)
  1. PEGASYS [Suspect]
     Indication: HEPATITIS C
     Route: 058
     Dates: start: 20061124
  2. RIBAPAK [Suspect]
     Indication: HEPATITIS C
     Route: 048
     Dates: start: 20061124

REACTIONS (4)
  - DEPRESSED MOOD [None]
  - DYSPNOEA [None]
  - INSOMNIA [None]
  - NEPHROLITHIASIS [None]
